FAERS Safety Report 11038821 (Version 3)
Quarter: 2015Q3

REPORT INFORMATION
  Report Type: Spontaneous
  Country: US (occurrence: US)
  Receive Date: 20150416
  Receipt Date: 20150820
  Transmission Date: 20151125
  Serious: Yes (Hospitalization, Other)
  Sender: FDA-Public Use
  Company Number: US-009507513-1504USA015494

PATIENT
  Sex: Female
  Weight: 78.91 kg

DRUGS (1)
  1. JANUVIA [Suspect]
     Active Substance: SITAGLIPTIN PHOSPHATE
     Indication: TYPE 2 DIABETES MELLITUS
     Dosage: 100 MG, QD
     Route: 048
     Dates: start: 200802, end: 200809

REACTIONS (16)
  - Pancreatectomy [Unknown]
  - Aortic calcification [Unknown]
  - Dyslipidaemia [Unknown]
  - Hypothyroidism [Unknown]
  - Hepatic cyst [Unknown]
  - Benign pancreatic neoplasm [Unknown]
  - Asthma [Unknown]
  - Splenectomy [Unknown]
  - Vein disorder [Unknown]
  - Hypertension [Recovered/Resolved]
  - Insulin-requiring type 2 diabetes mellitus [Unknown]
  - Gastrooesophageal reflux disease [Unknown]
  - Pancreatic neuroendocrine tumour [Unknown]
  - Large intestine polyp [Unknown]
  - Nephrolithiasis [Unknown]
  - Pulmonary mass [Unknown]

NARRATIVE: CASE EVENT DATE: 2008
